FAERS Safety Report 7502053-0 (Version None)
Quarter: 2011Q2

REPORT INFORMATION
  Report Type: 
  Country: None (occurrence: None)
  Receive Date: 20110523
  Receipt Date: 20110523
  Transmission Date: 20111010
  Serious: Yes (Other)
  Sender: FDA-Public Use
  Company Number: None

PATIENT
  Age: 72 Year
  Sex: Male
  Weight: 73.9363 kg

DRUGS (2)
  1. DILT-CD [Suspect]
     Indication: RAYNAUD'S PHENOMENON
     Dosage: 180MG 1 Q DAY PO
     Route: 048
     Dates: start: 20090201, end: 20091201
  2. DILT-CD [Suspect]
     Indication: CORONARY ARTERY DISEASE
     Dosage: 180MG 1 Q DAY PO
     Route: 048
     Dates: start: 20090201, end: 20091201

REACTIONS (3)
  - CHEST DISCOMFORT [None]
  - CHEST PAIN [None]
  - FLUSHING [None]
